FAERS Safety Report 11172031 (Version 4)
Quarter: 2015Q3

REPORT INFORMATION
  Report Type: Spontaneous
  Country: BR (occurrence: BR)
  Receive Date: 20150608
  Receipt Date: 20150821
  Transmission Date: 20151125
  Serious: Yes (Other)
  Sender: FDA-Public Use
  Company Number: BR-PFIZER INC-2015189407

PATIENT
  Sex: Female
  Weight: 57 kg

DRUGS (5)
  1. LIVEPAX [Concomitant]
     Dosage: UNK
  2. QUETIAPINE FUMARATE. [Suspect]
     Active Substance: QUETIAPINE FUMARATE
     Dosage: UNK
  3. HALDOL [Concomitant]
     Active Substance: HALOPERIDOL
     Dosage: UNK
  4. GEODON [Suspect]
     Active Substance: ZIPRASIDONE HYDROCHLORIDE\ZIPRASIDONE MESYLATE
     Indication: SCHIZOPHRENIA
     Dosage: 120 MG, DAILY
     Route: 048
     Dates: start: 2010
  5. CLONAZEPAM. [Concomitant]
     Active Substance: CLONAZEPAM
     Indication: INSOMNIA
     Dosage: 1 TO 2MG DAILY, AS NEEDED

REACTIONS (9)
  - Homicidal ideation [Recovering/Resolving]
  - Hypersensitivity [Unknown]
  - Fungal skin infection [Unknown]
  - Alopecia [Unknown]
  - Aggression [Recovering/Resolving]
  - Generalised erythema [Unknown]
  - Suicidal ideation [Recovering/Resolving]
  - Histrionic personality disorder [Recovering/Resolving]
  - Abnormal behaviour [Recovering/Resolving]

NARRATIVE: CASE EVENT DATE: 201411
